FAERS Safety Report 9819284 (Version 4)
Quarter: 2014Q1

REPORT INFORMATION
  Report Type: Spontaneous
  Country: US (occurrence: US)
  Receive Date: 20140115
  Receipt Date: 20140210
  Transmission Date: 20141002
  Serious: Yes (Other)
  Sender: FDA-Public Use
  Company Number: US-BAYER-2013-145678

PATIENT
  Age: 24 Year
  Sex: Female

DRUGS (2)
  1. ESSURE [Suspect]
     Indication: CONTRACEPTION
     Dosage: UNK
     Dates: start: 20121012, end: 20140109
  2. MIRENA [Suspect]
     Indication: CONTRACEPTION
     Dosage: 20 MCG/24HR, CONT
     Route: 015

REACTIONS (35)
  - Dizziness [Unknown]
  - Loss of consciousness [Unknown]
  - Adnexa uteri pain [Unknown]
  - Pain [Unknown]
  - Procedural pain [Unknown]
  - Muscle spasms [Unknown]
  - Pelvic pain [Unknown]
  - Adrenal disorder [Unknown]
  - Headache [Unknown]
  - Migraine [Unknown]
  - Photophobia [Unknown]
  - Hyperacusis [Unknown]
  - Urticaria [Unknown]
  - Abdominal distension [Unknown]
  - Decreased appetite [Unknown]
  - Weight decreased [Unknown]
  - Malaise [None]
  - Nausea [Unknown]
  - Back pain [Unknown]
  - Insomnia [Unknown]
  - Genital haemorrhage [Unknown]
  - Oligomenorrhoea [Unknown]
  - Nephrolithiasis [Unknown]
  - Menorrhagia [Unknown]
  - Dysmenorrhoea [Unknown]
  - Endometriosis [Unknown]
  - Feeling abnormal [Unknown]
  - Vulvovaginal rash [Unknown]
  - Fallopian tube disorder [Unknown]
  - Abdominal distension [Unknown]
  - Pain [Unknown]
  - Premenstrual syndrome [Unknown]
  - Coital bleeding [None]
  - Amenorrhoea [Recovered/Resolved]
  - Somnolence [Unknown]
